FAERS Safety Report 12631520 (Version 2)
Quarter: 2016Q3

REPORT INFORMATION
  Report Type: Spontaneous
  Country: US (occurrence: US)
  Receive Date: 20160808
  Receipt Date: 20160808
  Transmission Date: 20161109
  Serious: No
  Sender: FDA-Public Use
  Company Number: US-BEH-2015054436

PATIENT
  Age: 68 Year
  Sex: Male
  Weight: 88 kg

DRUGS (18)
  1. MULTIVITAMIN [Concomitant]
     Active Substance: VITAMINS
  2. ACETAMINOPHEN. [Concomitant]
     Active Substance: ACETAMINOPHEN
  3. COUMADIN [Concomitant]
     Active Substance: WARFARIN SODIUM
  4. METOPROLOL. [Concomitant]
     Active Substance: METOPROLOL
  5. METOPROLOL. [Concomitant]
     Active Substance: METOPROLOL
  6. ASPIRIN. [Concomitant]
     Active Substance: ASPIRIN
  7. FOLIC ACID. [Concomitant]
     Active Substance: FOLIC ACID
  8. BUDESONIDE. [Concomitant]
     Active Substance: BUDESONIDE
  9. HIZENTRA [Suspect]
     Active Substance: HUMAN IMMUNOGLOBULIN G
     Indication: HYPER IGM SYNDROME
     Route: 058
  10. HIZENTRA [Suspect]
     Active Substance: HUMAN IMMUNOGLOBULIN G
     Route: 058
  11. FLONASE [Concomitant]
     Active Substance: FLUTICASONE PROPIONATE
  12. OMEPRAZOLE. [Concomitant]
     Active Substance: OMEPRAZOLE
  13. CARTIA XT [Concomitant]
     Active Substance: DILTIAZEM HYDROCHLORIDE
  14. ISOSORBIDE. [Concomitant]
     Active Substance: ISOSORBIDE
  15. DIPHENHYDRAMINE. [Concomitant]
     Active Substance: DIPHENHYDRAMINE
  16. ZYRTEC [Concomitant]
     Active Substance: CETIRIZINE HYDROCHLORIDE
  17. CRESTOR [Concomitant]
     Active Substance: ROSUVASTATIN CALCIUM
  18. EPIPEN [Concomitant]
     Active Substance: EPINEPHRINE
     Indication: ANAPHYLACTIC REACTION

REACTIONS (2)
  - Infusion site erythema [Unknown]
  - Rash pustular [Unknown]

NARRATIVE: CASE EVENT DATE: 20150928
